FAERS Safety Report 8945272 (Version 1)
Quarter: 2012Q4

REPORT INFORMATION
  Report Type: 
  Country: CO (occurrence: CO)
  Receive Date: 20121205
  Receipt Date: 20121205
  Transmission Date: 20130627
  Serious: Yes (Other)
  Sender: FDA-Public Use
  Company Number: CO-UCBSA-068233

PATIENT
  Age: 41 Year
  Sex: Female

DRUGS (12)
  1. LEVETIRACETAM [Suspect]
     Indication: EPILEPSY
     Route: 048
     Dates: start: 201204, end: 201204
  2. LEVETIRACETAM [Suspect]
     Indication: EPILEPSY
     Dosage: 2 IN MORNING AND 2 AT NIGHT
     Route: 048
     Dates: start: 201204
  3. ENBREL [Suspect]
     Indication: RHEUMATOID ARTHRITIS
     Route: 058
     Dates: start: 201108
  4. CARBAMAZEPINE [Suspect]
     Indication: EPILEPSY
     Dosage: AT NIGHT
     Route: 048
     Dates: start: 2004, end: 201204
  5. FOLIC ACID [Concomitant]
  6. PREDNISOLON [Concomitant]
  7. ACETAMINOPHEN [Concomitant]
     Indication: PAIN
     Route: 048
  8. DOLEX [Concomitant]
     Indication: PAIN
     Route: 048
  9. TRAZODONE [Concomitant]
  10. METHOTREXATE [Concomitant]
  11. SULFASALAZINE [Concomitant]
  12. LEFLUNOMIDE [Concomitant]

REACTIONS (15)
  - Vaginal haemorrhage [Recovered/Resolved]
  - Hormone level abnormal [Recovering/Resolving]
  - Headache [Unknown]
  - Nausea [Unknown]
  - Vomiting [Unknown]
  - Muscle spasms [Unknown]
  - Somnolence [Recovering/Resolving]
  - Syncope [Not Recovered/Not Resolved]
  - Malaise [Unknown]
  - Dizziness [Unknown]
  - Dyspnoea [Not Recovered/Not Resolved]
  - Depressed mood [Not Recovered/Not Resolved]
  - Fatigue [Unknown]
  - Menopause [Unknown]
  - Incorrect drug administration rate [Recovered/Resolved]
